FAERS Safety Report 6416279-0 (Version None)
Quarter: 2009Q4

REPORT INFORMATION
  Report Type: 
  Country: None (occurrence: None)
  Receive Date: 20091027
  Receipt Date: 20091020
  Transmission Date: 20100525
  Serious: Yes (Other)
  Sender: FDA-Public Use
  Company Number: US-ELI_LILLY_AND_COMPANY-US200910005006

PATIENT
  Sex: Male

DRUGS (5)
  1. HUMULIN N [Suspect]
     Dosage: 150 U, 3/D
     Dates: start: 19990101
  2. HUMULIN R [Suspect]
     Indication: TYPE 2 DIABETES MELLITUS
     Dosage: 60 U, 3/D
     Dates: start: 19990101
  3. FISH OIL [Concomitant]
  4. ASCORBIC ACID [Concomitant]
  5. POTASSIUM CHLORIDE [Concomitant]

REACTIONS (10)
  - BLINDNESS [None]
  - BLINDNESS UNILATERAL [None]
  - DIABETIC RETINOPATHY [None]
  - EYE INJURY [None]
  - INCORRECT DOSE ADMINISTERED [None]
  - RETINAL ARTERY THROMBOSIS [None]
  - RETINAL HAEMORRHAGE [None]
  - RETINAL TEAR [None]
  - VISION BLURRED [None]
  - VISUAL ACUITY REDUCED [None]
